FAERS Safety Report 17054606 (Version 4)
Quarter: 2020Q3

REPORT INFORMATION
  Report Type: Spontaneous
  Country: CA (occurrence: CA)
  Receive Date: 20191120
  Receipt Date: 20200824
  Transmission Date: 20201102
  Serious: Yes (Death)
  Sender: FDA-Public Use
  Company Number: CA-TEVA-2019-CA-1137803

PATIENT
  Age: 53 Year
  Sex: Male

DRUGS (21)
  1. TACROLIMUS. [Suspect]
     Active Substance: TACROLIMUS
     Indication: PROPHYLAXIS AGAINST TRANSPLANT REJECTION
  2. ANCOTIL [Suspect]
     Active Substance: FLUCYTOSINE
     Indication: DISSEMINATED CRYPTOCOCCOSIS
     Route: 065
  3. INSULIN [Concomitant]
     Active Substance: INSULIN NOS
     Indication: TYPE 1 DIABETES MELLITUS
     Route: 065
  4. VANCOMYCIN [Suspect]
     Active Substance: VANCOMYCIN
     Indication: ANTIBIOTIC THERAPY
     Route: 042
  5. CEFTRIAXONE. [Concomitant]
     Active Substance: CEFTRIAXONE
     Indication: ANTIBIOTIC THERAPY
     Route: 042
  6. FLUCYTOSINE. [Concomitant]
     Active Substance: FLUCYTOSINE
     Indication: DISSEMINATED CRYPTOCOCCOSIS
     Route: 065
  7. VANCOMYCIN [Concomitant]
     Active Substance: VANCOMYCIN
     Indication: BACTERIAL SEPSIS
  8. AMPHOTERICIN B. [Suspect]
     Active Substance: AMPHOTERICIN B
     Indication: OSTEOMYELITIS FUNGAL
     Route: 065
  9. AMPHOTERICIN B. [Suspect]
     Active Substance: AMPHOTERICIN B
     Indication: DISSEMINATED CRYPTOCOCCOSIS
     Route: 065
  10. METRONIDAZOLE. [Concomitant]
     Active Substance: METRONIDAZOLE
     Indication: ANTIBIOTIC THERAPY
     Route: 042
  11. PREDNISOLONE. [Suspect]
     Active Substance: PREDNISOLONE
     Indication: IMMUNOSUPPRESSANT DRUG THERAPY
     Route: 065
  12. CEFTRIAXONE FOR INJECTION USP [Suspect]
     Active Substance: CEFTRIAXONE
     Indication: ANTIBIOTIC THERAPY
     Route: 042
  13. TACROLIMUS. [Suspect]
     Active Substance: TACROLIMUS
     Indication: LIVER TRANSPLANT
     Route: 065
  14. TACROLIMUS. [Suspect]
     Active Substance: TACROLIMUS
     Indication: IMMUNOSUPPRESSANT DRUG THERAPY
     Route: 065
  15. PREDNISONE. [Suspect]
     Active Substance: PREDNISONE
     Indication: LIVER TRANSPLANT
     Route: 065
  16. METRONIDAZOLE. [Suspect]
     Active Substance: METRONIDAZOLE
     Indication: ANTIBIOTIC THERAPY
     Route: 042
  17. VANCOMYCIN [Concomitant]
     Active Substance: VANCOMYCIN
     Indication: ANTIBIOTIC THERAPY
     Route: 042
  18. PREDNISONE. [Suspect]
     Active Substance: PREDNISONE
     Indication: IMMUNOSUPPRESSANT DRUG THERAPY
  19. AMPHOTERICIN B. [Suspect]
     Active Substance: AMPHOTERICIN B
     Indication: CRYPTOCOCCOSIS
     Dosage: 3 MG/KG DAILY;
     Route: 065
  20. METRONIDAZOLE. [Concomitant]
     Active Substance: METRONIDAZOLE
     Indication: BACTERIAL SEPSIS
  21. CEFTRIAXONE. [Concomitant]
     Active Substance: CEFTRIAXONE
     Indication: BACTERIAL SEPSIS

REACTIONS (25)
  - Electrolyte imbalance [Fatal]
  - Osteomyelitis [Fatal]
  - Pruritus [Fatal]
  - Pyrexia [Fatal]
  - Renal failure [Fatal]
  - Disseminated cryptococcosis [Fatal]
  - Muscle abscess [Fatal]
  - Pulmonary mass [Fatal]
  - Therapy non-responder [Fatal]
  - Treatment noncompliance [Fatal]
  - Vomiting [Fatal]
  - Osteomyelitis fungal [Fatal]
  - Skin ulcer [Fatal]
  - Arthralgia [Fatal]
  - Headache [Fatal]
  - Blood creatinine increased [Fatal]
  - Cerebral cyst [Fatal]
  - Intracranial pressure increased [Fatal]
  - Acute kidney injury [Fatal]
  - Hepatic enzyme increased [Fatal]
  - Tension headache [Fatal]
  - Skin lesion [Fatal]
  - Cryptococcosis [Fatal]
  - Liver transplant failure [Fatal]
  - Pancytopenia [Fatal]
